FAERS Safety Report 9826363 (Version 1)
Quarter: 2014Q1

REPORT INFORMATION
  Report Type: Spontaneous
  Country: US (occurrence: US)
  Receive Date: 20140117
  Receipt Date: 20140117
  Transmission Date: 20141002
  Serious: No
  Sender: FDA-Public Use
  Company Number: US-BIOGENIDEC-2014BI003271

PATIENT
  Age: 34 Year
  Sex: Female

DRUGS (8)
  1. TECFIDERA [Suspect]
     Indication: MULTIPLE SCLEROSIS
     Route: 048
     Dates: start: 20131230, end: 20140106
  2. TECFIDERA [Suspect]
     Indication: MULTIPLE SCLEROSIS
     Route: 048
     Dates: start: 20140107
  3. DEXTROAMPHETAMINE [Concomitant]
  4. IBUPROFEN [Concomitant]
  5. VITAMIN D [Concomitant]
  6. LORAZEPAM [Concomitant]
  7. VITAMIN B12 [Concomitant]
  8. ASPIRIN [Concomitant]

REACTIONS (3)
  - Migraine [Not Recovered/Not Resolved]
  - Flushing [Recovered/Resolved]
  - Dyspepsia [Recovered/Resolved]
